FAERS Safety Report 8601685 (Version 2)
Quarter: 2013Q4

REPORT INFORMATION
  Report Type: Spontaneous
  Country: US (occurrence: US)
  Receive Date: 20120606
  Receipt Date: 20131217
  Transmission Date: 20140711
  Serious: Yes (Hospitalization)
  Sender: FDA-Public Use
  Company Number: US-ACTELION-A-US2012-66489

PATIENT
  Age: 38 Year
  Sex: Female

DRUGS (5)
  1. TRACLEER [Suspect]
     Indication: PULMONARY ARTERIAL HYPERTENSION
     Dosage: UNK
     Route: 048
  2. SILDENAFIL [Concomitant]
  3. FLOLAN [Concomitant]
  4. COUMADIN [Concomitant]
  5. LASIX [Concomitant]

REACTIONS (2)
  - Cholelithiasis [Recovered/Resolved]
  - Cholelithotomy [Recovered/Resolved]
